FAERS Safety Report 16314386 (Version 1)
Quarter: 2019Q2

REPORT INFORMATION
  Report Type: Spontaneous
  Country: US (occurrence: US)
  Receive Date: 20190514
  Receipt Date: 20190514
  Transmission Date: 20190711
  Serious: Yes (Hospitalization)
  Sender: FDA-Public Use
  Company Number: None

PATIENT
  Age: 65 Year
  Sex: Female

DRUGS (7)
  1. GABAPENTIN. [Concomitant]
     Active Substance: GABAPENTIN
  2. LISINOPRIL. [Concomitant]
     Active Substance: LISINOPRIL
  3. PANTOPRAZOLE [Concomitant]
     Active Substance: PANTOPRAZOLE
  4. SERTRALINE [Concomitant]
     Active Substance: SERTRALINE HYDROCHLORIDE
  5. POT CL MICRO TAB [Concomitant]
  6. LORBRENA [Suspect]
     Active Substance: LORLATINIB
     Indication: LUNG NEOPLASM MALIGNANT
     Route: 048
     Dates: start: 20190220
  7. ISOSORB MONO TAB [Concomitant]

REACTIONS (2)
  - Myocardial infarction [None]
  - Therapy cessation [None]

NARRATIVE: CASE EVENT DATE: 20190401
